FAERS Safety Report 13693690 (Version 2)
Quarter: 2017Q3

REPORT INFORMATION
  Report Type: Spontaneous
  Country: DE (occurrence: DE)
  Receive Date: 20170627
  Receipt Date: 20170731
  Transmission Date: 20171127
  Serious: Yes (Other)
  Sender: FDA-Public Use
  Company Number: DE-BAYER-2017-118038

PATIENT
  Age: 22 Year
  Sex: Female

DRUGS (1)
  1. JAYDESS [Suspect]
     Active Substance: LEVONORGESTREL
     Dosage: 14 MCG/24HR, CONT
     Route: 015
     Dates: start: 201510, end: 201706

REACTIONS (7)
  - Alopecia [Recovering/Resolving]
  - Migraine with aura [Recovering/Resolving]
  - Onychoclasis [Recovered/Resolved]
  - Weight increased [Not Recovered/Not Resolved]
  - Autoimmune thyroiditis [Not Recovered/Not Resolved]
  - Loss of libido [Recovered/Resolved]
  - Menstruation irregular [None]

NARRATIVE: CASE EVENT DATE: 201511
